FAERS Safety Report 5067709-0 (Version None)
Quarter: 2006Q3

REPORT INFORMATION
  Report Type: 
  Country: None (occurrence: None)
  Receive Date: 20060802
  Receipt Date: 20060707
  Transmission Date: 20061208
  Serious: Yes (Life-Threatening, Hospitalization, Other)
  Sender: FDA-Public Use
  Company Number: DE-BRISTOL-MYERS SQUIBB COMPANY-13444211

PATIENT
  Age: 65 Year
  Sex: Male

DRUGS (4)
  1. ERBITUX [Suspect]
     Indication: OROPHARYNGEAL CANCER STAGE UNSPECIFIED
     Dates: start: 20060518, end: 20060518
  2. NEXIUM [Concomitant]
  3. TRAMADOL HCL [Concomitant]
  4. CHLORHEXIDINE [Concomitant]

REACTIONS (5)
  - BLOOD PRESSURE IMMEASURABLE [None]
  - CONVULSION [None]
  - INFUSION RELATED REACTION [None]
  - LOSS OF CONSCIOUSNESS [None]
  - RASH [None]
